FAERS Safety Report 26139649 (Version 1)
Quarter: 2025Q4

REPORT INFORMATION
  Report Type: Spontaneous
  Country: US (occurrence: US)
  Receive Date: 20251210
  Receipt Date: 20251210
  Transmission Date: 20260118
  Serious: No
  Sender: BRISTOL-MYERS SQUIBB COMPANY
  Company Number: US-BRISTOL-MYERS SQUIBB COMPANY-2025-162304

PATIENT
  Age: 55 Year
  Sex: Female

DRUGS (1)
  1. ORENCIA [Suspect]
     Active Substance: ABATACEPT
     Indication: Rheumatoid arthritis
     Dosage: Q WEEKLY
     Route: 058
     Dates: start: 202504

REACTIONS (3)
  - Device delivery system issue [Unknown]
  - Needle issue [Unknown]
  - Contusion [Unknown]

NARRATIVE: CASE EVENT DATE: 20251128
